FAERS Safety Report 14003381 (Version 5)
Quarter: 2018Q1

REPORT INFORMATION
  Report Type: Report from Study
  Country: US (occurrence: US)
  Receive Date: 20170922
  Receipt Date: 20180201
  Transmission Date: 20180508
  Serious: Yes (Hospitalization)
  Sender: FDA-Public Use
  Company Number: US-ACTELION-A-US2016-139670

PATIENT
  Age: 73 Year
  Sex: Female
  Weight: 65.76 kg

DRUGS (4)
  1. OPSUMIT [Suspect]
     Active Substance: MACITENTAN
     Indication: PULMONARY HYPERTENSION
     Dosage: 10 MG, QD
     Route: 048
     Dates: start: 20160622
  2. SILDENAFIL. [Concomitant]
     Active Substance: SILDENAFIL
  3. TYVASO [Concomitant]
     Active Substance: TREPROSTINIL
  4. OXYGEN. [Concomitant]
     Active Substance: OXYGEN

REACTIONS (7)
  - Lower limb fracture [Recovered/Resolved]
  - Dyspnoea [Unknown]
  - Stress fracture [Recovered/Resolved]
  - Joint injury [Unknown]
  - Tooth fracture [Unknown]
  - Fall [Recovered/Resolved]
  - Fluid retention [Unknown]

NARRATIVE: CASE EVENT DATE: 20160708
